FAERS Safety Report 16551262 (Version 1)
Quarter: 2019Q3

REPORT INFORMATION
  Report Type: Other
  Country: IL (occurrence: IL)
  Receive Date: 20190710
  Receipt Date: 20190710
  Transmission Date: 20191004
  Serious: Yes (Other)
  Sender: FDA-Public Use
  Company Number: IL-DEXPHARM-20190456

PATIENT
  Age: 92 Year
  Sex: Female

DRUGS (11)
  1. PRAMIN (METOCLOPRAMIDE) [Suspect]
     Active Substance: METOCLOPRAMIDE HYDROCHLORIDE
     Indication: BACK PAIN
  2. CARDILOC [Suspect]
     Active Substance: BISOPROLOL FUMARATE
     Indication: ATRIAL FIBRILLATION
  3. ELIQUIS [Suspect]
     Active Substance: APIXABAN
     Indication: ATRIAL FIBRILLATION
  4. TRAMADEX OD 100 [Suspect]
     Active Substance: TRAMADOL HYDROCHLORIDE
     Indication: ANALGESIC THERAPY
  5. PERCOCET [Suspect]
     Active Substance: ACETAMINOPHEN\OXYCODONE HYDROCHLORIDE
     Indication: BACK PAIN
  6. ACAMOL [Suspect]
     Active Substance: ACETAMINOPHEN
  7. ARCOXIA [Suspect]
     Active Substance: ETORICOXIB
     Indication: ANALGESIC THERAPY
  8. ROKACET [Suspect]
     Active Substance: ACETAMINOPHEN\CAFFEINE\CODEINE PHOSPHATE
  9. ABITREN AMPOULES [Suspect]
     Active Substance: DICLOFENAC
     Indication: BACK PAIN
     Route: 048
  10. ABITREN AMPOULES [Suspect]
     Active Substance: DICLOFENAC
  11. VOLTAREN [Suspect]
     Active Substance: DICLOFENAC SODIUM

REACTIONS (3)
  - Haemorrhoidal haemorrhage [Unknown]
  - Constipation [Unknown]
  - Haemorrhage [Unknown]
